FAERS Safety Report 9013841 (Version 1)
Quarter: 2013Q1

REPORT INFORMATION
  Report Type: Spontaneous
  Country: US (occurrence: US)
  Receive Date: 20130115
  Receipt Date: 20130115
  Transmission Date: 20140127
  Serious: Yes (Hospitalization)
  Sender: FDA-Public Use
  Company Number: US-BAYER-2013-003957

PATIENT
  Age: 36 Year
  Sex: Female

DRUGS (14)
  1. YAZ [Suspect]
  2. GIANVI [Suspect]
  3. OXYGEN [Concomitant]
  4. SYMBICORT [Concomitant]
     Dosage: 160-4.5 MCG/ACT
     Route: 045
  5. AZITHROMYCIN [Concomitant]
     Dosage: 250 MG, UNK
     Route: 048
  6. ALPRAZOLAM [Concomitant]
     Dosage: 1 MG, UNK
     Route: 048
  7. NYSTATIN [Concomitant]
     Dosage: 100000 U/ML, UNK
  8. FLUCONAZOLE [Concomitant]
     Dosage: 150 MG, UNK
  9. PROVENTIL HFA [Concomitant]
     Dosage: 90 MCG
     Route: 045
  10. ZYFLO [Concomitant]
     Dosage: 600 MG, ER 12 HR
     Route: 048
  11. XOPENEX [Concomitant]
     Dosage: 45 MCG/ACT FOUR TIMES DAILY, AS NEEDED
     Route: 045
  12. AVELOX [Concomitant]
     Dosage: 400 MG,1 TABLET DAILY
     Route: 048
  13. CEPHALEXIN [Concomitant]
     Route: 048
  14. OXYCODONE/APAP [Concomitant]
     Dosage: 5-325 MG
     Route: 048

REACTIONS (2)
  - Deep vein thrombosis [None]
  - Pulmonary embolism [None]
